FAERS Safety Report 5458690-0 (Version None)
Quarter: 2007Q3

REPORT INFORMATION
  Report Type: 
  Country: None (occurrence: None)
  Receive Date: 20070919
  Receipt Date: 20070418
  Transmission Date: 20080115
  Serious: No
  Sender: FDA-Public Use
  Company Number: US-ASTRAZENECA-2007UW07631

PATIENT
  Age: 28 Year
  Sex: Male
  Weight: 77.1 kg

DRUGS (3)
  1. SEROQUEL [Suspect]
     Indication: BIPOLAR DISORDER
     Dosage: 350 - 375 MG DAILY
     Route: 048
     Dates: start: 20070401
  2. WELLBUTRIN [Concomitant]
  3. DEPAKOTE [Concomitant]

REACTIONS (11)
  - DIZZINESS [None]
  - DRUG ADMINISTRATION ERROR [None]
  - DYSGEUSIA [None]
  - DYSPEPSIA [None]
  - FATIGUE [None]
  - INCREASED APPETITE [None]
  - LOSS OF LIBIDO [None]
  - NAUSEA [None]
  - POLLAKIURIA [None]
  - STOMACH DISCOMFORT [None]
  - THIRST [None]
